FAERS Safety Report 6047934-2 (Version None)
Quarter: 2009Q1

REPORT INFORMATION
  Report Type: 
  Country: None (occurrence: None)
  Receive Date: 20090123
  Receipt Date: 20090112
  Transmission Date: 20090719
  Serious: Yes (Hospitalization, Other)
  Sender: FDA-Public Use
  Company Number: US-NOVOPROD-247467

PATIENT
  Sex: Female
  Weight: 51.701 kg

DRUGS (13)
  1. VAGIFEM [Suspect]
     Indication: MENOPAUSAL SYMPTOMS
     Dosage: UNK, UNK
     Dates: start: 20020107, end: 20031121
  2. ESTROGEN NOS [Suspect]
     Indication: MENOPAUSAL SYMPTOMS
     Dosage: UNKNOWN
  3. CENESTIN [Suspect]
     Indication: MENOPAUSAL SYMPTOMS
     Dosage: .625 MG, UNK
     Dates: start: 20020809, end: 20030801
  4. PROMETRIUM [Suspect]
     Indication: MENOPAUSAL SYMPTOMS
     Dosage: 100 MG, UNK
     Dates: start: 20020901, end: 20040415
  5. ESTRING [Suspect]
     Indication: MENOPAUSAL SYMPTOMS
     Dosage: 2 MG, UNK
     Dates: start: 20010709, end: 20040514
  6. MENEST [Suspect]
     Indication: MENOPAUSAL SYMPTOMS
     Dosage: .3 MG, UNK
     Dates: start: 20030901, end: 20040102
  7. FEMRING [Suspect]
     Indication: MENOPAUSAL SYMPTOMS
     Dosage: UNK, UNK
     Dates: start: 20031215
  8. ESTRATEST [Suspect]
     Indication: MENOPAUSAL SYMPTOMS
     Dosage: .625 MG, UNK
     Dates: start: 20020620, end: 20020809
  9. PROSOM [Concomitant]
     Indication: ILL-DEFINED DISORDER
     Dates: start: 19970101, end: 20060101
  10. ULTRAM [Concomitant]
     Indication: ANALGESIA
     Dosage: UNK, PRN
     Dates: start: 20000101
  11. WELLBUTRIN [Concomitant]
     Indication: DEPRESSION
     Dosage: INTERMITTENTLY
     Dates: start: 20020101
  12. LUNESTA [Concomitant]
     Indication: INSOMNIA
  13. VIAGRA [Concomitant]
     Indication: LOSS OF LIBIDO
     Dosage: FOR APPROXIMATELY 1 MONTH
     Dates: start: 20020101, end: 20020101

REACTIONS (1)
  - BREAST CANCER [None]
